FAERS Safety Report 7717951-2 (Version None)
Quarter: 2011Q3

REPORT INFORMATION
  Report Type: 
  Country: None (occurrence: None)
  Receive Date: 20110817
  Receipt Date: 20101108
  Transmission Date: 20111222
  Serious: Yes (Other)
  Sender: FDA-Public Use
  Company Number: 20109100

PATIENT
  Sex: Male

DRUGS (2)
  1. MORPHINE [Concomitant]
  2. LIORESAL [Suspect]
     Indication: MUSCLE SPASTICITY
     Dosage: INTRATHECAL
     Route: 037

REACTIONS (3)
  - PAIN [None]
  - DISCOMFORT [None]
  - NO THERAPEUTIC RESPONSE [None]
